FAERS Safety Report 5877572-3 (Version None)
Quarter: 2008Q3

REPORT INFORMATION
  Report Type: 
  Country: None (occurrence: None)
  Receive Date: 20080911
  Receipt Date: 20080904
  Transmission Date: 20090109
  Serious: Yes (Other)
  Sender: FDA-Public Use
  Company Number: PHHY2008AT20285

PATIENT
  Age: 87 Year
  Sex: Female

DRUGS (7)
  1. CO-DIOVAN FORTE [Suspect]
  2. FUROSEMID [Concomitant]
  3. DILATREND [Concomitant]
  4. SIMVASTATIN [Concomitant]
  5. DANCOR [Concomitant]
  6. MOLISIDOLAT [Concomitant]
  7. THROMBO ASS [Concomitant]

REACTIONS (3)
  - BLOOD CREATININE INCREASED [None]
  - HYPERNATRAEMIA [None]
  - RENAL IMPAIRMENT [None]
